FAERS Safety Report 7572945-5 (Version None)
Quarter: 2011Q2

REPORT INFORMATION
  Report Type: 
  Country: None (occurrence: None)
  Receive Date: 20110627
  Receipt Date: 20110617
  Transmission Date: 20111010
  Serious: Yes (Other)
  Sender: FDA-Public Use
  Company Number: US-JNJFOC-20110609790

PATIENT
  Sex: Female
  Weight: 50.8 kg

DRUGS (2)
  1. DOXORUBICIN HCL [Suspect]
     Indication: ENDOMETRIAL CANCER
     Route: 042
     Dates: start: 20101101, end: 20110406
  2. DOXORUBICIN HCL [Suspect]
     Route: 042
     Dates: start: 20101106, end: 20101106

REACTIONS (6)
  - DISCOMFORT [None]
  - OFF LABEL USE [None]
  - PAIN IN EXTREMITY [None]
  - URTICARIA [None]
  - PYREXIA [None]
  - PAIN [None]
